FAERS Safety Report 16179280 (Version 2)
Quarter: 2019Q2

REPORT INFORMATION
  Report Type: Spontaneous
  Country: US (occurrence: US)
  Receive Date: 20190410
  Receipt Date: 20190607
  Transmission Date: 20190711
  Serious: Yes (Hospitalization)
  Sender: FDA-Public Use
  Company Number: US-GW PHARMA-201904USGW0937

PATIENT

DRUGS (7)
  1. EPIDIOLEX [Suspect]
     Active Substance: CANNABIDIOL
     Dosage: 9.37 MG/KG, 150 MILLIGRAM, BID (WEEK 3)
     Route: 048
     Dates: start: 20190421, end: 20190428
  2. KEPPRA [Concomitant]
     Active Substance: LEVETIRACETAM
     Indication: PRODUCT USED FOR UNKNOWN INDICATION
     Dosage: UNK
     Route: 065
  3. BANZEL [Concomitant]
     Active Substance: RUFINAMIDE
     Indication: PRODUCT USED FOR UNKNOWN INDICATION
     Dosage: UNK
     Route: 065
  4. EPIDIOLEX [Suspect]
     Active Substance: CANNABIDIOL
     Dosage: 3.12 MG/KG, 50 MILLIGRAM, BID (WEEK 1)
     Route: 048
     Dates: start: 20190405, end: 20190412
  5. DEPAKOTE [Concomitant]
     Active Substance: DIVALPROEX SODIUM
     Indication: PRODUCT USED FOR UNKNOWN INDICATION
     Dosage: UNK
     Route: 065
  6. EPIDIOLEX [Suspect]
     Active Substance: CANNABIDIOL
     Indication: SEIZURE
     Dosage: 12.5 MG/KG, 200 MILLIGRAM, BID (WEEK 4)
     Route: 048
     Dates: start: 20190429
  7. EPIDIOLEX [Suspect]
     Active Substance: CANNABIDIOL
     Dosage: 6.25 MG/KG, 100 MILLIGRAM, BID (WEEK 2)
     Route: 048
     Dates: start: 20190413, end: 20190420

REACTIONS (1)
  - Seizure [Unknown]

NARRATIVE: CASE EVENT DATE: 20190405
